FAERS Safety Report 15700128 (Version 2)
Quarter: 2018Q4

REPORT INFORMATION
  Report Type: Spontaneous
  Country: US (occurrence: US)
  Receive Date: 20181207
  Receipt Date: 20181210
  Transmission Date: 20190205
  Serious: Yes (Other)
  Sender: FDA-Public Use
  Company Number: US-TEVA-2018-US-983569

PATIENT
  Sex: Female

DRUGS (4)
  1. LORAZEPAM ACTAVIS [Suspect]
     Active Substance: LORAZEPAM
     Indication: OBSESSIVE-COMPULSIVE DISORDER
     Dosage: 1 MILLIGRAM DAILY;
     Route: 065
  2. LORAZEPAM ACTAVIS [Suspect]
     Active Substance: LORAZEPAM
     Indication: ANXIETY
     Route: 065
  3. LORAZEPAM ACTAVIS [Suspect]
     Active Substance: LORAZEPAM
  4. LORAZEPAM LEENING PHARMACEUTICS [Suspect]
     Active Substance: LORAZEPAM
     Route: 065

REACTIONS (5)
  - Sinus disorder [Unknown]
  - Head discomfort [Unknown]
  - Withdrawal syndrome [Unknown]
  - Chest pain [Recovered/Resolved]
  - Product substitution issue [Unknown]
